FAERS Safety Report 9064775 (Version 2)
Quarter: 2013Q3

REPORT INFORMATION
  Report Type: Report from Study
  Country: US (occurrence: US)
  Receive Date: 20130128
  Receipt Date: 20130923
  Transmission Date: 20140515
  Serious: Yes (Hospitalization)
  Sender: FDA-Public Use
  Company Number: 2013SP000191

PATIENT
  Age: 56 Year
  Sex: Male
  Weight: 105 kg

DRUGS (5)
  1. SM-13496 [Suspect]
     Indication: SCHIZOPHRENIA
     Route: 048
     Dates: start: 20121221, end: 20130109
  2. LISINOPRIL [Concomitant]
     Indication: HYPERTENSION
     Route: 048
     Dates: start: 201108
  3. LORAZEPAM [Concomitant]
     Indication: AGITATION
     Route: 048
     Dates: start: 20121226, end: 20130103
  4. PROLIXIN [Concomitant]
     Indication: SCHIZOPHRENIA
  5. PROLIXIN [Concomitant]
     Indication: SCHIZOPHRENIA

REACTIONS (1)
  - Psychotic disorder [Not Recovered/Not Resolved]
